FAERS Safety Report 5069237-5 (Version None)
Quarter: 2006Q3

REPORT INFORMATION
  Report Type: 
  Country: None (occurrence: None)
  Receive Date: 20060731
  Receipt Date: 20060621
  Transmission Date: 20061208
  Serious: Yes (Other)
  Sender: FDA-Public Use
  Company Number: 2006078446

PATIENT
  Age: 17 Year
  Sex: Male
  Weight: 72.5755 kg

DRUGS (7)
  1. NEURONTIN [Suspect]
     Indication: COMPLEX PARTIAL SEIZURES
     Dates: end: 20060501
  2. LYRICA [Suspect]
     Indication: COMPLEX PARTIAL SEIZURES
     Dosage: 225 MG (75 MG, 3 IN 1 D), ORAL
     Route: 048
     Dates: start: 20060501, end: 20060706
  3. CARBAMAZEPINE [Suspect]
     Indication: COMPLEX PARTIAL SEIZURES
  4. DEPAKOTE [Suspect]
     Indication: COMPLEX PARTIAL SEIZURES
  5. VITAMINS (VITAMINS) [Concomitant]
  6. PREDNISONE TAB [Concomitant]
  7. VALTREX [Concomitant]

REACTIONS (12)
  - ASTHENIA [None]
  - BONE DENSITY DECREASED [None]
  - BONE EROSION [None]
  - COMPLEX PARTIAL SEIZURES [None]
  - DEAFNESS NEUROSENSORY [None]
  - FATIGUE [None]
  - FEELING ABNORMAL [None]
  - GRAND MAL CONVULSION [None]
  - HYPERSOMNIA [None]
  - NERVE INJURY [None]
  - OSSICLE DISORDER [None]
  - WEIGHT INCREASED [None]
